FAERS Safety Report 5701052-9 (Version None)
Quarter: 2008Q2

REPORT INFORMATION
  Report Type: 
  Country: None (occurrence: None)
  Receive Date: 20080410
  Receipt Date: 20080326
  Transmission Date: 20081010
  Serious: Yes (Death, Hospitalization, Other)
  Sender: FDA-Public Use
  Company Number: SE-AMGEN-UK269843

PATIENT
  Sex: Female
  Weight: 0.6 kg

DRUGS (4)
  1. NEUPOGEN [Suspect]
     Indication: NEUTROPENIA
     Route: 065
     Dates: start: 20071217, end: 20071217
  2. CASPOFUNGIN [Concomitant]
     Route: 065
     Dates: start: 20071217, end: 20071220
  3. FLUCONAZOLE [Concomitant]
  4. AMPHOTERICIN B [Concomitant]
     Dates: start: 20071211, end: 20071220

REACTIONS (1)
  - MYOCARDITIS [None]
